FAERS Safety Report 8152356-4 (Version None)
Quarter: 2012Q1

REPORT INFORMATION
  Report Type: 
  Country: None (occurrence: None)
  Receive Date: 20120221
  Receipt Date: 20120217
  Transmission Date: 20120608
  Serious: Yes (Death, Other)
  Sender: FDA-Public Use
  Company Number: US-AMGEN-USASP2012010723

PATIENT
  Sex: Female

DRUGS (1)
  1. XGEVA [Suspect]
     Indication: METASTASES TO BONE
     Dates: start: 20110101, end: 20120101

REACTIONS (3)
  - HAEMOLYSIS [None]
  - HYPOPHOSPHATAEMIA [None]
  - DISEASE PROGRESSION [None]
